FAERS Safety Report 26082573 (Version 1)
Quarter: 2025Q4

REPORT INFORMATION
  Report Type: Spontaneous
  Country: US (occurrence: US)
  Receive Date: 20251124
  Receipt Date: 20251124
  Transmission Date: 20260119
  Serious: No
  Sender: GILEAD
  Company Number: US-GILEAD-2025-0737753

PATIENT
  Age: 67 Year
  Sex: Female

DRUGS (2)
  1. LENACAPAVIR [Suspect]
     Active Substance: LENACAPAVIR
     Indication: HIV infection
     Dosage: 600MG BY MOUTH ON DAYS 1 AND DAY 2.
     Route: 048
     Dates: start: 202511
  2. LENACAPAVIR [Suspect]
     Active Substance: LENACAPAVIR
     Indication: HIV infection
     Dosage: DAY 1 AND EVERY 6 MONTHS AS INSTRUCTED
     Route: 058
     Dates: start: 202511

REACTIONS (1)
  - Illness [Unknown]
